FAERS Safety Report 23027300 (Version 3)
Quarter: 2023Q4

REPORT INFORMATION
  Report Type: Spontaneous
  Country: US (occurrence: None)
  Receive Date: 20231004
  Receipt Date: 20231024
  Transmission Date: 20240109
  Serious: Yes (Hospitalization)
  Sender: FDA-Public Use
  Company Number: US-ROCHE-3430452

PATIENT
  Age: 82 Year
  Sex: Male
  Weight: 81.72 kg

DRUGS (13)
  1. VABYSMO [Suspect]
     Active Substance: FARICIMAB\FARICIMAB-SVOA
     Indication: Neovascular age-related macular degeneration
     Route: 050
     Dates: start: 202302
  2. AVASTIN [Suspect]
     Active Substance: BEVACIZUMAB
     Indication: Neovascular age-related macular degeneration
     Route: 065
  3. ATENOLOL [Concomitant]
     Active Substance: ATENOLOL
     Indication: Arrhythmia
     Route: 048
     Dates: end: 20230918
  4. ATENOLOL [Concomitant]
     Active Substance: ATENOLOL
     Route: 048
     Dates: start: 20230920, end: 20230923
  5. ATENOLOL [Concomitant]
     Active Substance: ATENOLOL
     Dosage: ONE-HALF OF 25 MG TABLET
     Route: 048
     Dates: start: 20230924, end: 20230925
  6. LIPITOR [Concomitant]
     Active Substance: ATORVASTATIN CALCIUM
     Indication: Hypercholesterolaemia
     Dosage: TAKES 1 TABLET AT 7 PM
     Route: 048
  7. METFORMIN HYDROCHLORIDE [Concomitant]
     Active Substance: METFORMIN HYDROCHLORIDE
     Indication: Glucose tolerance impaired
     Dosage: TAKES 1 TABLET IN THE MORNING AND 2 TABLETS AT 7 PM IN THE EVENING
     Route: 048
  8. COENZYME Q10 [Concomitant]
     Active Substance: DIETARY SUPPLEMENT\UBIDECARENONE
     Dosage: TAKES 1 CAPSULE IN THE MORNING
     Route: 048
  9. FISH OIL [Concomitant]
     Active Substance: FISH OIL
     Dosage: TAKES 1 CAPSULE TWICE A DAY
     Route: 048
  10. CITRACAL PLUS D [Concomitant]
     Route: 048
  11. FOLIC ACID [Concomitant]
     Active Substance: FOLIC ACID
     Dosage: TAKES 1 TABLET IN THE MORNING
     Route: 048
  12. NIACIN [Concomitant]
     Active Substance: NIACIN
     Indication: Basal cell carcinoma
     Route: 048
  13. ZINC [Concomitant]
     Active Substance: PYRITHIONE ZINC\ZINC\ZINC CHLORIDE
     Route: 048

REACTIONS (6)
  - Dizziness [Not Recovered/Not Resolved]
  - Gait disturbance [Unknown]
  - Fall [Unknown]
  - Heart rate decreased [Unknown]
  - Off label use [Unknown]
  - Intentional product use issue [Unknown]

NARRATIVE: CASE EVENT DATE: 20230913
